FAERS Safety Report 9264763 (Version 1)
Quarter: 2013Q2

REPORT INFORMATION
  Report Type: Spontaneous
  Country: US (occurrence: None)
  Receive Date: 20130426
  Receipt Date: 20130426
  Transmission Date: 20140414
  Serious: Yes (Hospitalization)
  Sender: FDA-Public Use
  Company Number: AUR-APL-2013-03304

PATIENT
  Age: 9 Year
  Sex: Male
  Weight: 32.5 kg

DRUGS (3)
  1. RISPERIDONE (RISPERIDONE) [Suspect]
     Indication: AGGRESSION
     Dosage: (0.5 MG, 2 IN 1 D), UNKNOWN
  2. METHYLPHENIDATE HYDROCHLORIDE [Suspect]
     Indication: ATTENTION DEFICIT/HYPERACTIVITY DISORDER
     Dosage: (20 MG, 2 IN 1 D) UNKNOWN
  3. CLONIDINE (CLONIDINE) [Suspect]
     Indication: ATTENTION DEFICIT/HYPERACTIVITY DISORDER
     Dosage: (0.05 MG, 2 IN 1 D), UNKNOWN

REACTIONS (14)
  - Fatigue [None]
  - Therapeutic response decreased [None]
  - Irritability [None]
  - Restlessness [None]
  - Speech disorder [None]
  - Disturbance in attention [None]
  - Disturbance in attention [None]
  - Frustration [None]
  - Psychomotor hyperactivity [None]
  - Negativism [None]
  - Aggression [None]
  - Somnolence [None]
  - Abnormal behaviour [None]
  - Drug ineffective [None]
